APPROVED DRUG PRODUCT: BUPIVACAINE HYDROCHLORIDE PRESERVATIVE FREE
Active Ingredient: BUPIVACAINE HYDROCHLORIDE
Strength: 0.5%
Dosage Form/Route: INJECTABLE;INJECTION
Application: A076012 | Product #002
Applicant: INTERNATIONAL MEDICATED SYSTEMS LTD
Approved: Jan 9, 2002 | RLD: No | RS: No | Type: DISCN